FAERS Safety Report 7097843 (Version 3)
Quarter: 2013Q2

REPORT INFORMATION
  Report Type: Report from Study
  Country: BE (occurrence: BE)
  Receive Date: 20090827
  Receipt Date: 20130426
  Transmission Date: 20140414
  Serious: Yes (Life-Threatening)
  Sender: FDA-Public Use
  Company Number: BE-BIOGENIDEC-2009BI026814

PATIENT
  Age: 42 Year
  Sex: Female

DRUGS (16)
  1. TYSABRI [Suspect]
     Indication: RELAPSING-REMITTING MULTIPLE SCLEROSIS
     Route: 042
     Dates: start: 20081120, end: 20090703
  2. TYSABRI [Suspect]
     Indication: RELAPSING-REMITTING MULTIPLE SCLEROSIS
     Route: 042
     Dates: start: 20090904
  3. MOBIC [Concomitant]
     Indication: PAIN
  4. NEURONTIN [Concomitant]
     Indication: NEURALGIA
     Dates: start: 2000
  5. TAMSULOSIN [Concomitant]
     Indication: URETHRAL PAIN
     Dates: start: 2007
  6. TAMSULOSIN [Concomitant]
     Indication: URETHRITIS NONINFECTIVE
     Dates: start: 2007
  7. EMSELEX [Concomitant]
     Indication: MICTURITION URGENCY
     Dates: start: 200801
  8. LIORESAL [Concomitant]
     Indication: MUSCLE SPASTICITY
     Dates: start: 2004
  9. METHADONE [Concomitant]
     Indication: BACK PAIN
     Dates: start: 2008
  10. PARACETAMOL [Concomitant]
     Indication: MYALGIA
     Dates: start: 1999
  11. PARACETAMOL [Concomitant]
     Indication: ARTHRALGIA
     Dates: start: 1999
  12. TRAMADOL [Concomitant]
     Indication: PAIN
     Dates: start: 2001
  13. VASEXTEN [Concomitant]
     Indication: HYPERTENSION
     Dates: start: 2007
  14. TRITACE [Concomitant]
     Indication: HYPERTENSION
     Dates: start: 2007
  15. MOVICOL [Concomitant]
     Indication: CONSTIPATION
  16. MICROGYNON [Concomitant]
     Indication: CONTRACEPTION

REACTIONS (2)
  - Drug-induced liver injury [Recovered/Resolved]
  - Urinary tract infection [Unknown]
